FAERS Safety Report 5278199-7 (Version None)
Quarter: 2007Q1

REPORT INFORMATION
  Report Type: 
  Country: None (occurrence: None)
  Receive Date: 20061213
  Receipt Date: 20060519
  Transmission Date: 20070707
  Serious: No
  Sender: FDA-Public Use
  Company Number: 2006UW10133

PATIENT
  Age: 49 Year
  Sex: Female

DRUGS (3)
  1. SEROQUEL [Suspect]
     Dosage: 75 MG PO
     Route: 048
  2. WELLBUTRIN [Concomitant]
  3. LITHIUM CARBONATE [Concomitant]

REACTIONS (1)
  - PANCREATITIS CHRONIC [None]
